FAERS Safety Report 4615802-6 (Version None)
Quarter: 2005Q2

REPORT INFORMATION
  Report Type: 
  Country: None (occurrence: None)
  Receive Date: 20050304
  Receipt Date: 20040823
  Transmission Date: 20051028
  Serious: Yes (Hospitalization)
  Sender: FDA-Public Use
  Company Number: F(LIT)14/1104

PATIENT
  Age: 73 Year
  Sex: Female

DRUGS (5)
  1. OMEPRAZOLE [Suspect]
     Indication: BARRETT'S OESOPHAGUS
     Dosage: 20 MG DAILY, ORAL
     Route: 048
  2. DILTIAZEM [Concomitant]
  3. CILAZAPRIL [Concomitant]
  4. CLONAZEPAM [Concomitant]
  5. VALPROIC ACID [Concomitant]

REACTIONS (1)
  - NEPHRITIS INTERSTITIAL [None]
